FAERS Safety Report 25806874 (Version 1)
Quarter: 2025Q3

REPORT INFORMATION
  Report Type: Spontaneous
  Country: JP (occurrence: JP)
  Receive Date: 20250916
  Receipt Date: 20250916
  Transmission Date: 20251021
  Serious: Yes (Other)
  Sender: AMGEN
  Company Number: JP-AMGEN-JPNSP2025182531

PATIENT

DRUGS (3)
  1. PEGFILGRASTIM [Suspect]
     Active Substance: PEGFILGRASTIM
     Indication: Prophylaxis
     Route: 058
  2. EPIRUBICIN [Suspect]
     Active Substance: EPIRUBICIN
     Indication: Breast cancer
     Route: 065
  3. CYCLOPHOSPHAMIDE [Suspect]
     Active Substance: CYCLOPHOSPHAMIDE
     Indication: Breast cancer
     Route: 065

REACTIONS (23)
  - Thrombocytopenia [Unknown]
  - Febrile neutropenia [Unknown]
  - Leukopenia [Unknown]
  - Neutropenia [Recovered/Resolved]
  - Arthralgia [Unknown]
  - Pneumonia [Unknown]
  - Myalgia [Unknown]
  - Neuropathy peripheral [Unknown]
  - Fatigue [Unknown]
  - Anaemia [Unknown]
  - Aspartate aminotransferase [Unknown]
  - Decreased appetite [Unknown]
  - Nausea [Unknown]
  - Constipation [Unknown]
  - Diarrhoea [Unknown]
  - Oedema [Unknown]
  - Eczema [Unknown]
  - Stomatitis [Unknown]
  - Pyrexia [Unknown]
  - Dysgeusia [Unknown]
  - Facial nerve disorder [Unknown]
  - Headache [Unknown]
  - Alopecia [Unknown]
